FAERS Safety Report 6094037-7 (Version None)
Quarter: 2009Q1

REPORT INFORMATION
  Report Type: 
  Country: None (occurrence: None)
  Receive Date: 20090223
  Receipt Date: 20090212
  Transmission Date: 20090719
  Serious: Yes (Death)
  Sender: FDA-Public Use
  Company Number: GXKR2009IT01901

PATIENT
  Age: 56 Year
  Sex: Male

DRUGS (7)
  1. DEXAMETHASONE [Suspect]
     Dosage: 16MG/DAY
  2. ERYTHROPOIETIN (NGX) (ERYTHROPOIETIN (NGX)) UNKNOWN [Suspect]
     Dosage: 10 MICROUNITS, QW3
  3. THALIDOMIDE [Suspect]
     Indication: PROSTATE CANCER
     Dosage: 10 MG
  4. ZOLEDRONIC ACID [Concomitant]
  5. MORPHINE [Concomitant]
  6. SALICYLATES (SALICYLATES) [Concomitant]
  7. BETA BLOCKING AGENTS (NO INGREDIENTS/SUBSTANCES) [Concomitant]

REACTIONS (6)
  - DISSEMINATED INTRAVASCULAR COAGULATION [None]
  - HAEMORRHAGIC DIATHESIS [None]
  - NERVOUS SYSTEM DISORDER [None]
  - PERFORMANCE STATUS DECREASED [None]
  - PURPURA [None]
  - RENAL IMPAIRMENT [None]
